FAERS Safety Report 5013786-2 (Version None)
Quarter: 2006Q2

REPORT INFORMATION
  Report Type: 
  Country: None (occurrence: None)
  Receive Date: 20060526
  Receipt Date: 20060526
  Transmission Date: 20061013
  Serious: Yes (Hospitalization, Other)
  Sender: FDA-Public Use
  Company Number: None

PATIENT
  Age: 74 Year
  Sex: Female
  Weight: 98 kg

DRUGS (3)
  1. DESMOPRESSIN ACETATE [Suspect]
     Indication: AZOTAEMIA
     Dosage: 32 MCG   IV    IV DRIP;  25 MCG   IV   IV DRIP
     Route: 041
     Dates: start: 20060524, end: 20060524
  2. DESMOPRESSIN ACETATE [Suspect]
     Indication: HAEMORRHAGE
     Dosage: 32 MCG   IV    IV DRIP;  25 MCG   IV   IV DRIP
     Route: 041
     Dates: start: 20060524, end: 20060524
  3. DESMOPRESSIN ACETATE [Suspect]
     Indication: PROPHYLAXIS
     Dosage: 32 MCG   IV    IV DRIP;  25 MCG   IV   IV DRIP
     Route: 041
     Dates: start: 20060524, end: 20060524

REACTIONS (7)
  - BLOOD PRESSURE INCREASED [None]
  - BURNING SENSATION [None]
  - FEELING ABNORMAL [None]
  - HEART RATE INCREASED [None]
  - INFUSION SITE PAIN [None]
  - PHARMACEUTICAL PRODUCT COMPLAINT [None]
  - VASOCONSTRICTION [None]
